FAERS Safety Report 23842495 (Version 2)
Quarter: 2024Q2

REPORT INFORMATION
  Report Type: Spontaneous
  Country: NL (occurrence: NL)
  Receive Date: 20240510
  Receipt Date: 20240522
  Transmission Date: 20240716
  Serious: Yes (Death)
  Sender: FDA-Public Use
  Company Number: None

PATIENT
  Age: 64 Year
  Sex: Female
  Weight: 85 kg

DRUGS (1)
  1. HYDROXYCHLOROQUINE [Suspect]
     Active Substance: HYDROXYCHLOROQUINE
     Indication: Rheumatic disorder
     Dosage: COATED TABLET, 200 MG (MILLIGRAM), HYDROXYCHLOROQUINE  OMHULD  / BRAND NAME NOT SPECIFIED
     Route: 065
     Dates: start: 20240410

REACTIONS (1)
  - Cardiac failure acute [Fatal]
